FAERS Safety Report 9000560 (Version 2)
Quarter: 2013Q1

REPORT INFORMATION
  Report Type: Spontaneous
  Country: US (occurrence: US)
  Receive Date: 20130107
  Receipt Date: 20130226
  Transmission Date: 20140127
  Serious: Yes (Hospitalization)
  Sender: FDA-Public Use
  Company Number: US-BAYER-2013-000589

PATIENT
  Age: 29 Year
  Sex: Female
  Weight: 112 kg

DRUGS (8)
  1. YASMIN [Suspect]
     Indication: POLYCYSTIC OVARIES
  2. OCELLA [Suspect]
  3. GIANVI [Suspect]
  4. YAZ [Suspect]
  5. METFORMIN HCL [Concomitant]
     Dosage: 500 MG, UNK
     Route: 048
     Dates: start: 20050117, end: 20051005
  6. TRICOR [Concomitant]
     Dosage: 145 MG, UNK
     Route: 048
     Dates: start: 20050702, end: 20051005
  7. NEXIUM [Concomitant]
  8. ALLEGRA [Concomitant]

REACTIONS (5)
  - Deep vein thrombosis [None]
  - Injury [None]
  - Pain [None]
  - Emotional distress [None]
  - Pain [None]
